FAERS Safety Report 21285617 (Version 2)
Quarter: 2022Q3

REPORT INFORMATION
  Report Type: Spontaneous
  Country: JP (occurrence: JP)
  Receive Date: 20220902
  Receipt Date: 20220915
  Transmission Date: 20221027
  Serious: Yes (Hospitalization, Other)
  Sender: FDA-Public Use
  Company Number: JP-CHUGAI-2022025593

PATIENT
  Age: 70 Year
  Sex: Male
  Weight: 69.4 kg

DRUGS (2)
  1. AVASTIN [Suspect]
     Active Substance: BEVACIZUMAB
     Indication: Hepatocellular carcinoma
     Dosage: 500 MILLIGRAM, ONCE/3WEEKS
     Route: 041
     Dates: start: 20210907, end: 20220601
  2. TECENTRIQ [Suspect]
     Active Substance: ATEZOLIZUMAB
     Indication: Hepatocellular carcinoma
     Dosage: 1200 MILLIGRAM, ONCE/3WEEKS
     Route: 041
     Dates: start: 20210907, end: 20220601

REACTIONS (3)
  - Hepatic function abnormal [Not Recovered/Not Resolved]
  - Rash [Recovering/Resolving]
  - Leukoplakia oral [Recovering/Resolving]

NARRATIVE: CASE EVENT DATE: 20220622
